FAERS Safety Report 9418712 (Version 6)
Quarter: 2016Q4

REPORT INFORMATION
  Report Type: Spontaneous
  Country: BR (occurrence: BR)
  Receive Date: 20130725
  Receipt Date: 20161219
  Transmission Date: 20170207
  Serious: Yes (Other)
  Sender: FDA-Public Use
  Company Number: BR-ROCHE-1170311

PATIENT
  Sex: Female
  Weight: 58 kg

DRUGS (13)
  1. BUSCOPAN [Concomitant]
     Active Substance: BUTYLSCOPOLAMINE BROMIDE
  2. RIVOTRIL [Suspect]
     Active Substance: CLONAZEPAM
     Indication: SLEEP DISORDER
     Route: 048
  3. OLANZAPINE. [Concomitant]
     Active Substance: OLANZAPINE
     Route: 065
  4. CLONAZEPAM. [Suspect]
     Active Substance: CLONAZEPAM
     Indication: INSOMNIA
     Route: 065
  5. RIVOTRIL [Suspect]
     Active Substance: CLONAZEPAM
     Indication: SLEEP DISORDER
  6. CRESTOR [Concomitant]
     Active Substance: ROSUVASTATIN CALCIUM
     Indication: BLOOD CHOLESTEROL ABNORMAL
     Route: 065
  7. MIRTAZAPINE. [Suspect]
     Active Substance: MIRTAZAPINE
     Indication: PANIC DISORDER
  8. MIRTAZAPINE. [Suspect]
     Active Substance: MIRTAZAPINE
     Indication: INSOMNIA
  9. RIVOTRIL [Suspect]
     Active Substance: CLONAZEPAM
     Indication: DEPRESSION
     Route: 048
  10. MIRTAZAPINE. [Suspect]
     Active Substance: MIRTAZAPINE
     Indication: DEPRESSION
     Route: 065
  11. RIVOTRIL [Suspect]
     Active Substance: CLONAZEPAM
     Indication: INSOMNIA
     Route: 048
  12. RIVOTRIL [Suspect]
     Active Substance: CLONAZEPAM
     Indication: DEPRESSION
     Dosage: 2.5 MG/ML
     Route: 065
  13. SEROQUEL [Suspect]
     Active Substance: QUETIAPINE FUMARATE
     Indication: INSOMNIA
     Route: 065

REACTIONS (21)
  - Blood cholesterol abnormal [Not Recovered/Not Resolved]
  - Decreased appetite [Recovered/Resolved]
  - Weight increased [Unknown]
  - Nervousness [Not Recovered/Not Resolved]
  - Dizziness [Unknown]
  - Depression [Not Recovered/Not Resolved]
  - Panic disorder [Unknown]
  - Thinking abnormal [Not Recovered/Not Resolved]
  - Paranoia [Unknown]
  - Insomnia [Recovered/Resolved]
  - Sciatica [Not Recovered/Not Resolved]
  - Weight decreased [Unknown]
  - Pharyngitis [Recovered/Resolved]
  - Drug ineffective [Unknown]
  - Vomiting [Unknown]
  - Dysgeusia [Unknown]
  - Ear infection [Recovered/Resolved]
  - Malaise [Unknown]
  - Somnolence [Unknown]
  - Thinking abnormal [Unknown]
  - Myalgia [Not Recovered/Not Resolved]
